FAERS Safety Report 7273608-6 (Version None)
Quarter: 2011Q1

REPORT INFORMATION
  Report Type: 
  Country: None (occurrence: None)
  Receive Date: 20110203
  Receipt Date: 20101110
  Transmission Date: 20110831
  Serious: No
  Sender: FDA-Public Use
  Company Number: US-ABBOTT-09P-163-0569062-00

PATIENT
  Sex: Female

DRUGS (5)
  1. SYNTHROID [Suspect]
  2. AMBIEN [Concomitant]
     Indication: INSOMNIA
  3. CYTOMEL [Concomitant]
     Indication: HYPOTHYROIDISM
     Dates: start: 20101001
  4. SYNTHROID [Suspect]
     Indication: HYPOTHYROIDISM
     Dosage: 2 IN 1 DAYS, ON AND OFF
     Dates: start: 19690101
  5. CYCLOBENZAPRINE [Concomitant]
     Indication: MUSCLE RELAXANT THERAPY

REACTIONS (2)
  - MIGRAINE [None]
  - REACTION TO COLOURING [None]
